FAERS Safety Report 10581885 (Version 1)
Quarter: 2014Q4

REPORT INFORMATION
  Report Type: Report from Study
  Country: CA (occurrence: CA)
  Receive Date: 20141113
  Receipt Date: 20141113
  Transmission Date: 20150529
  Serious: Yes (Other)
  Sender: FDA-Public Use
  Company Number: CA-BAYER-2014-166511

PATIENT
  Age: 55 Year
  Sex: Female

DRUGS (6)
  1. ADVIL [Concomitant]
     Active Substance: IBUPROFEN
  2. BETASERON [Suspect]
     Active Substance: INTERFERON BETA-1B
     Indication: MULTIPLE SCLEROSIS
     Dosage: 0.250 MG, UNK
     Dates: start: 19980511
  3. OMEGA 3-6-9 [Concomitant]
  4. GRAPE SEED [Concomitant]
  5. VITAMIN B12 [Concomitant]
     Active Substance: CYANOCOBALAMIN
  6. VITAMIN D [Concomitant]
     Active Substance: CHOLECALCIFEROL
     Dosage: 2000 IU, DAILY

REACTIONS (4)
  - Influenza like illness [Unknown]
  - Vision blurred [Unknown]
  - Urinary incontinence [Unknown]
  - Loss of control of legs [Unknown]

NARRATIVE: CASE EVENT DATE: 20140101
